FAERS Safety Report 7400583-3 (Version None)
Quarter: 2011Q2

REPORT INFORMATION
  Report Type: 
  Country: None (occurrence: None)
  Receive Date: 20110407
  Receipt Date: 20110405
  Transmission Date: 20111010
  Serious: Yes (Hospitalization, Other)
  Sender: FDA-Public Use
  Company Number: CN-PFIZER INC-2011070323

PATIENT
  Age: 91 Year
  Sex: Male

DRUGS (2)
  1. EFFEXOR [Suspect]
     Indication: DEPRESSION
     Dosage: 75 MG, 1X/DAY
     Dates: start: 20100101, end: 20100101
  2. EFFEXOR [Suspect]
     Indication: ANXIETY
     Dosage: 150 MG, 1X/DAY
     Dates: start: 20050101, end: 20100101

REACTIONS (12)
  - LOSS OF CONSCIOUSNESS [None]
  - PSYCHOTIC DISORDER [None]
  - PERSECUTORY DELUSION [None]
  - HYPOTENSION [None]
  - MANIA [None]
  - DISORIENTATION [None]
  - ANXIETY [None]
  - ABNORMAL BEHAVIOUR [None]
  - DRUG WITHDRAWAL SYNDROME [None]
  - SENSORY DISTURBANCE [None]
  - IRRITABILITY [None]
  - MYOCARDIAL INFARCTION [None]
